FAERS Safety Report 11159608 (Version 1)
Quarter: 2015Q2

REPORT INFORMATION
  Report Type: Spontaneous
  Country: US (occurrence: US)
  Receive Date: 20150603
  Receipt Date: 20150603
  Transmission Date: 20150821
  Serious: No
  Sender: FDA-Public Use
  Company Number: US-ABBVIE-14P-163-1310410-00

PATIENT
  Sex: Female
  Weight: 43.13 kg

DRUGS (2)
  1. MARINOL [Suspect]
     Active Substance: DRONABINOL
     Indication: NAUSEA
     Route: 048
  2. MARINOL [Suspect]
     Active Substance: DRONABINOL
     Indication: MIGRAINE

REACTIONS (3)
  - Limb discomfort [Recovered/Resolved]
  - Somnolence [Recovered/Resolved]
  - Off label use [Unknown]
